FAERS Safety Report 23042617 (Version 1)
Quarter: 2023Q4

REPORT INFORMATION
  Report Type: Spontaneous
  Country: FI (occurrence: FI)
  Receive Date: 20231009
  Receipt Date: 20231009
  Transmission Date: 20240110
  Serious: Yes (Other)
  Sender: FDA-Public Use
  Company Number: FI-JNJFOC-20231007363

PATIENT
  Age: 50 Year
  Sex: Male

DRUGS (2)
  1. IMBRUVICA [Suspect]
     Active Substance: IBRUTINIB
     Indication: Chronic lymphocytic leukaemia
     Dosage: FIRST ADMIN DATE- 2023
     Route: 048
     Dates: end: 202308
  2. IMBRUVICA [Suspect]
     Active Substance: IBRUTINIB
     Indication: Chronic lymphocytic leukaemia
     Dosage: LAST ADMIN DATE- 2023
     Route: 048
     Dates: start: 202304

REACTIONS (6)
  - Neuropathy peripheral [Unknown]
  - Off label use [Unknown]
  - Facial paralysis [Unknown]
  - Leukocytosis [Unknown]
  - Nausea [Unknown]
  - Body temperature increased [Unknown]

NARRATIVE: CASE EVENT DATE: 20230101
